FAERS Safety Report 7113157-9 (Version None)
Quarter: 2010Q4

REPORT INFORMATION
  Report Type: 
  Country: None (occurrence: None)
  Receive Date: 20101119
  Receipt Date: 20101110
  Transmission Date: 20110411
  Serious: Yes (Death, Hospitalization)
  Sender: FDA-Public Use
  Company Number: US-AMGEN-QUU392187

PATIENT

DRUGS (16)
  1. NPLATE [Suspect]
     Indication: IDIOPATHIC THROMBOCYTOPENIC PURPURA
     Dosage: 3 A?G/KG, UNK
     Dates: start: 20091130, end: 20100409
  2. NPLATE [Suspect]
     Dosage: 3 A?G/KG, UNK
     Dates: start: 20091130, end: 20100409
  3. AMLODIPINE BESYLATE [Concomitant]
     Dosage: UNK UNK, UNK
  4. DOCUSATE SODIUM [Concomitant]
     Dosage: UNK UNK, UNK
  5. TIZANIDINE HYDROCHLORIDE [Concomitant]
     Dosage: UNK UNK, UNK
  6. UNSPECIFIED MEDICATION [Concomitant]
     Dosage: UNK UNK, UNK
  7. FUROSEMIDE [Concomitant]
     Dosage: UNK UNK, UNK
  8. HYDRALAZINE [Concomitant]
     Dosage: UNK UNK, UNK
  9. INSULIN ASPART [Concomitant]
     Dosage: UNK UNK, UNK
  10. LEVEMIR [Concomitant]
     Dosage: UNK UNK, UNK
  11. LOMOTIL [Concomitant]
     Dosage: UNK UNK, UNK
  12. OXYCODONE HCL [Concomitant]
     Dosage: UNK UNK, UNK
  13. PANTOPRAZOLE SODIUM [Concomitant]
     Dosage: UNK UNK, UNK
  14. SUCRALFATE [Concomitant]
     Dosage: UNK UNK, UNK
  15. PREDNISONE [Concomitant]
     Dosage: UNK UNK, UNK
  16. LEVETIRACETAM [Concomitant]
     Dosage: UNK UNK, UNK

REACTIONS (11)
  - ACUTE RESPIRATORY FAILURE [None]
  - ATRIAL FIBRILLATION [None]
  - CARDIO-RESPIRATORY ARREST [None]
  - HYPERKALAEMIA [None]
  - METABOLIC ACIDOSIS [None]
  - METABOLIC ENCEPHALOPATHY [None]
  - PLATELET COUNT DECREASED [None]
  - RENAL FAILURE ACUTE [None]
  - THERAPEUTIC RESPONSE DECREASED [None]
  - UROSEPSIS [None]
  - VENTRICULAR TACHYCARDIA [None]
